FAERS Safety Report 14782142 (Version 10)
Quarter: 2020Q2

REPORT INFORMATION
  Report Type: Report from Study
  Country: CA (occurrence: CA)
  Receive Date: 20180420
  Receipt Date: 20200518
  Transmission Date: 20200713
  Serious: Yes (Hospitalization, Other)
  Sender: FDA-Public Use
  Company Number: CA-ROCHE-2104712

PATIENT
  Age: 28 Year
  Sex: Female

DRUGS (14)
  1. LAMOTRIGINE. [Concomitant]
     Active Substance: LAMOTRIGINE
  2. NABILONE [Concomitant]
     Active Substance: NABILONE
  3. DICLOFENAC [Concomitant]
     Active Substance: DICLOFENAC
  4. SYNTHROID [Concomitant]
     Active Substance: LEVOTHYROXINE SODIUM
  5. NORTRIPTYLINE [Concomitant]
     Active Substance: NORTRIPTYLINE
  6. WELLBUTRIN [Concomitant]
     Active Substance: BUPROPION HYDROCHLORIDE
  7. OCREVUS [Suspect]
     Active Substance: OCRELIZUMAB
     Dosage: 2ND DOSE, DAY 14
     Route: 042
     Dates: start: 20180329
  8. HYDROCHLOROTHIAZIDE. [Concomitant]
     Active Substance: HYDROCHLOROTHIAZIDE
     Indication: NEPHROLITHIASIS
  9. BACLOFEN. [Concomitant]
     Active Substance: BACLOFEN
  10. CYCLOBENZAPRINE. [Concomitant]
     Active Substance: CYCLOBENZAPRINE
  11. MORPHINE [Concomitant]
     Active Substance: MORPHINE
  12. NAPROXEN. [Concomitant]
     Active Substance: NAPROXEN
  13. OCREVUS [Suspect]
     Active Substance: OCRELIZUMAB
     Indication: RELAPSING-REMITTING MULTIPLE SCLEROSIS
     Dosage: 300 MG AT DAY 0 AND 14, THEN 600 MG EVERY 6 MONTH
     Route: 042
     Dates: start: 20180316
  14. TYLENOL [Concomitant]
     Active Substance: ACETAMINOPHEN

REACTIONS (5)
  - Alopecia [Unknown]
  - Infusion related reaction [Not Recovered/Not Resolved]
  - Cystitis interstitial [Unknown]
  - Cystitis [Recovered/Resolved]
  - Cystitis interstitial [Recovered/Resolved]

NARRATIVE: CASE EVENT DATE: 20180329
